FAERS Safety Report 8800598 (Version 2)
Quarter: 2014Q2

REPORT INFORMATION
  Report Type: Report from Study
  Country: US (occurrence: US)
  Receive Date: 20120921
  Receipt Date: 20131226
  Transmission Date: 20141212
  Serious: Yes (Death)
  Sender: FDA-Public Use
  Company Number: US-ROCHE-1131221

PATIENT
  Age: 66 Year
  Sex: Male

DRUGS (5)
  1. AVASTIN [Suspect]
     Indication: OESOPHAGEAL CARCINOMA
     Dosage: IN 100ML SODIUM CHLORIDE INJECTION INFUSE OVER 30MINUTES AT 200ML PER HOUR
     Route: 042
     Dates: start: 20101112
  2. AVASTIN [Suspect]
     Indication: METASTASES TO NERVOUS SYSTEM
  3. METOCLOPRAMIDE [Concomitant]
     Dosage: ONCE EVERY 4 HOURS WHEN REQUIRED INFUSE OVER 15MINS AT 200ML PER HOUR IN 50ML SODIUM CHLORIDE INJECT
     Route: 042
     Dates: start: 20101112
  4. CLONIDINE [Concomitant]
     Dosage: PRN WHEN REQUIRED
     Route: 048
     Dates: start: 20101112
  5. NACL .9% [Concomitant]
     Route: 065

REACTIONS (1)
  - Death [Fatal]
